FAERS Safety Report 18609164 (Version 1)
Quarter: 2020Q4

REPORT INFORMATION
  Report Type: Spontaneous
  Country: US (occurrence: US)
  Receive Date: 20201214
  Receipt Date: 20201214
  Transmission Date: 20210114
  Serious: No
  Sender: FDA-Public Use
  Company Number: US-RECORDATI RARE DISEASES-2102927

PATIENT
  Age: 43 Year
  Sex: Female

DRUGS (1)
  1. SIGNIFOR LAR [Suspect]
     Active Substance: PASIREOTIDE PAMOATE
     Indication: CUSHING^S SYNDROME
     Dates: start: 201506

REACTIONS (3)
  - Product dose omission issue [Unknown]
  - Off label use [Unknown]
  - Headache [Unknown]
